FAERS Safety Report 5576414-3 (Version None)
Quarter: 2007Q4

REPORT INFORMATION
  Report Type: 
  Country: None (occurrence: None)
  Receive Date: 20071130
  Receipt Date: 20070919
  Transmission Date: 20080405
  Serious: No
  Sender: FDA-Public Use
  Company Number: US200709004253

PATIENT
  Age: 72 Year
  Sex: Male
  Weight: 131.5 kg

DRUGS (2)
  1. BYETTA [Suspect]
     Indication: INSULIN-REQUIRING TYPE II DIABETES MELLITUS
     Dosage: 10 UG, 2/D SUCUTANEOUS
     Route: 058
     Dates: start: 20050901
  2. LANTUS [Concomitant]

REACTIONS (4)
  - ASTHENIA [None]
  - BLOOD GLUCOSE DECREASED [None]
  - SOMNOLENCE [None]
  - WEIGHT DECREASED [None]
